FAERS Safety Report 4425105-0 (Version None)
Quarter: 2004Q3

REPORT INFORMATION
  Report Type: 
  Country: None (occurrence: None)
  Receive Date: 20040813
  Receipt Date: 20040803
  Transmission Date: 20050211
  Serious: Yes (Other)
  Sender: FDA-Public Use
  Company Number: US-JNJFOC-20040602637

PATIENT
  Age: 59 Year
  Sex: Male
  Weight: 77.11 kg

DRUGS (4)
  1. TOPAMAX [Suspect]
     Indication: PAIN
     Route: 049
     Dates: start: 20040520
  2. NEURONTIN [Concomitant]
  3. LEXAPRO [Concomitant]
  4. FENTANYL [Concomitant]
     Indication: DRUG USE FOR UNKNOWN INDICATION
     Route: 062

REACTIONS (3)
  - DYSPHONIA [None]
  - GASTROOESOPHAGEAL REFLUX DISEASE [None]
  - STOMATITIS [None]
